FAERS Safety Report 13054015 (Version 1)
Quarter: 2016Q4

REPORT INFORMATION
  Report Type: Spontaneous
  Country: US (occurrence: US)
  Receive Date: 20161221
  Receipt Date: 20161221
  Transmission Date: 20170207
  Serious: Yes (Other)
  Sender: FDA-Public Use
  Company Number: None

PATIENT
  Age: 19 Year
  Sex: Male
  Weight: 76.5 kg

DRUGS (1)
  1. HYOSCYAMIN SULFATE VIRTUS [Suspect]
     Active Substance: HYOSCYAMINE SULFATE

REACTIONS (4)
  - Heart rate increased [None]
  - Heart rate irregular [None]
  - Vision blurred [None]
  - Dizziness [None]

NARRATIVE: CASE EVENT DATE: 20160711
